FAERS Safety Report 16739255 (Version 1)
Quarter: 2019Q3

REPORT INFORMATION
  Report Type: Other
  Country: ZA (occurrence: ZA)
  Receive Date: 20190826
  Receipt Date: 20190826
  Transmission Date: 20191005
  Serious: Yes (Hospitalization, Other)
  Sender: FDA-Public Use
  Company Number: ZA-DENTSPLY-2019SCDP000460

PATIENT
  Age: 15 Year
  Sex: Male

DRUGS (2)
  1. MARCAINE [Suspect]
     Active Substance: BUPIVACAINE HYDROCHLORIDE
     Indication: LOCAL ANAESTHESIA
     Dosage: 2 MILLILITER, INJECTED INTO THE BASE OF THE PENIS VIA RING BLOCK USING A SYRINGE AND NEEDLE
     Dates: start: 2013, end: 2013
  2. LIDOCAINE HCL [Suspect]
     Active Substance: LIDOCAINE HYDROCHLORIDE
     Indication: LOCAL ANAESTHESIA
     Dosage: 8 MILLILITER, INJECTED INTO THE BASE OF THE PENIS VIA RING BLOCK USING A SYRINGE AND NEEDLE
     Dates: start: 2013, end: 2013

REACTIONS (1)
  - Penile swelling [Unknown]

NARRATIVE: CASE EVENT DATE: 2013
